FAERS Safety Report 10063671 (Version 1)
Quarter: 2014Q2

REPORT INFORMATION
  Report Type: Spontaneous
  Country: FR (occurrence: FR)
  Receive Date: 20140407
  Receipt Date: 20140407
  Transmission Date: 20141212
  Serious: Yes (Hospitalization)
  Sender: FDA-Public Use
  Company Number: PHHY2014FR039659

PATIENT
  Age: 42 Year
  Sex: Female

DRUGS (12)
  1. GLIVEC [Suspect]
     Dosage: 400 MG, BID
     Route: 048
     Dates: start: 20131227, end: 20140108
  2. SPRYCEL [Suspect]
     Dosage: 140 MG, QD
     Dates: start: 20140114, end: 20140206
  3. SPRYCEL [Suspect]
     Dosage: 140 MG,QOW (D1 ,D 15)
     Dates: start: 20140207, end: 20140221
  4. VINCRISTINE [Concomitant]
     Dosage: UNK UKN, UNK
     Dates: start: 20131227
  5. DEXAMETHASONE [Concomitant]
     Dosage: UNK UKN, UNK
     Dates: start: 20131227
  6. METHOTREXATE [Concomitant]
     Dosage: 1000 MG/M2, UNK
     Dates: start: 20140207
  7. ARACYTINE [Concomitant]
     Dosage: UNK UKN, 3  G/M2
     Dates: start: 20140207
  8. BACTRIM FORTE [Concomitant]
     Dosage: UNK UKN,1 DF TIW
  9. LEDERFOLINE [Concomitant]
     Dosage: UNK UKN,25 MG TIW
  10. INEXIUM [Concomitant]
     Dosage: UNK UKN, UNK
  11. IMOVANE [Concomitant]
     Dosage: UNK UKN, UNK
  12. TOPALGIC [Concomitant]
     Dosage: UNK UKN, UNK

REACTIONS (3)
  - Sensory loss [Unknown]
  - Neuropathy peripheral [Unknown]
  - Peripheral sensorimotor neuropathy [Unknown]
